FAERS Safety Report 4825504-9 (Version None)
Quarter: 2005Q4

REPORT INFORMATION
  Report Type: 
  Country: None (occurrence: None)
  Receive Date: 20051111
  Receipt Date: 20051103
  Transmission Date: 20060501
  Serious: Yes (Other)
  Sender: FDA-Public Use
  Company Number: US-JNJFOC-20051101622

PATIENT
  Sex: Female
  Weight: 89.36 kg

DRUGS (6)
  1. ORTHO EVRA [Suspect]
     Indication: DRUG USE FOR UNKNOWN INDICATION
     Route: 062
  2. EFFEXOR [Concomitant]
  3. ADDERALL 10 [Concomitant]
  4. ADDERALL 10 [Concomitant]
  5. ADDERALL 10 [Concomitant]
  6. ADDERALL 10 [Concomitant]

REACTIONS (3)
  - ABORTION SPONTANEOUS [None]
  - DRUG EXPOSURE DURING PREGNANCY [None]
  - UNINTENDED PREGNANCY [None]
